FAERS Safety Report 20613731 (Version 1)
Quarter: 2022Q1

REPORT INFORMATION
  Report Type: Spontaneous
  Country: IT (occurrence: IT)
  Receive Date: 20220319
  Receipt Date: 20220319
  Transmission Date: 20220424
  Serious: Yes (Hospitalization, Other)
  Sender: FDA-Public Use
  Company Number: IT-MINISAL02-850311

PATIENT
  Age: 18 Year
  Sex: Female

DRUGS (2)
  1. ALPRAZOLAM [Suspect]
     Active Substance: ALPRAZOLAM
     Indication: Depression
     Dosage: 1.75 MILLIGRAM (TOTAL)
     Route: 048
     Dates: start: 20220228
  2. SERTRALINE [Concomitant]
     Active Substance: SERTRALINE HYDROCHLORIDE
     Indication: Product used for unknown indication
     Dosage: UNK
     Route: 048

REACTIONS (3)
  - Toxicity to various agents [Unknown]
  - Drug abuse [Unknown]
  - Alcohol poisoning [Unknown]

NARRATIVE: CASE EVENT DATE: 20220228
